FAERS Safety Report 8724767 (Version 3)
Quarter: 2012Q4

REPORT INFORMATION
  Report Type: 
  Country: GB (occurrence: GB)
  Receive Date: 20120815
  Receipt Date: 20121102
  Transmission Date: 20130627
  Serious: Yes (Other)
  Sender: FDA-Public Use
  Company Number: GB-ELI_LILLY_AND_COMPANY-GB201208002767

PATIENT
  Sex: Male

DRUGS (3)
  1. CIALIS [Suspect]
     Dosage: 5 mg, qd
  2. CIALIS [Suspect]
     Dosage: 20 mg, prn
  3. CIALIS [Suspect]
     Dosage: 5 mg, qd

REACTIONS (1)
  - Cardiac failure [Recovered/Resolved]
